FAERS Safety Report 5207368-7 (Version None)
Quarter: 2007Q1

REPORT INFORMATION
  Report Type: 
  Country: None (occurrence: None)
  Receive Date: 20070110
  Receipt Date: 20061228
  Transmission Date: 20070707
  Serious: Yes (Hospitalization)
  Sender: FDA-Public Use
  Company Number: FSC_0026_2006

PATIENT
  Age: 93 Year
  Sex: Female

DRUGS (9)
  1. ISOPTIN [Suspect]
     Indication: ATRIAL FIBRILLATION
     Dosage: 2 DF QD PO
     Route: 048
     Dates: start: 20060101, end: 20061016
  2. DIGOXIN [Suspect]
     Indication: CARDIAC FAILURE
     Dosage: 1 DF QD PO
     Route: 048
     Dates: start: 20060101, end: 20061016
  3. FUROSEMIDE [Concomitant]
  4. SPIRONOLACTONE [Concomitant]
  5. OMEPRAZOLE [Concomitant]
  6. GLYCERYL TRINITRATE [Concomitant]
  7. ASPIRIN [Concomitant]
  8. ALLOPURINOL TAB [Concomitant]
  9. LORAZEPAM [Concomitant]

REACTIONS (7)
  - ATRIAL TACHYCARDIA [None]
  - ATRIOVENTRICULAR BLOCK [None]
  - BLOOD CREATININE INCREASED [None]
  - CARDIAC DISORDER [None]
  - DRUG TOXICITY [None]
  - EMBOLISM [None]
  - PERIPHERAL ISCHAEMIA [None]
